FAERS Safety Report 12844187 (Version 1)
Quarter: 2016Q4

REPORT INFORMATION
  Report Type: Report from Study
  Country: DE (occurrence: DE)
  Receive Date: 20161013
  Receipt Date: 20161013
  Transmission Date: 20170207
  Serious: Yes (Death)
  Sender: FDA-Public Use
  Company Number: DE-CELGENEUS-THADE200600191

PATIENT
  Age: 60 Year
  Sex: Female

DRUGS (6)
  1. ATORVASTATIN [Concomitant]
     Active Substance: ATORVASTATIN
     Indication: HYPERCHOLESTEROLAEMIA
     Route: 065
  2. CITALOPRAM [Concomitant]
     Active Substance: CITALOPRAM HYDROBROMIDE
     Indication: DEPRESSION
     Route: 065
  3. RAMIPRIL. [Concomitant]
     Active Substance: RAMIPRIL
     Indication: HYPERTENSION
     Route: 065
  4. RILUTEK [Concomitant]
     Active Substance: RILUZOLE
     Indication: AMYOTROPHIC LATERAL SCLEROSIS
     Dosage: 100 MG
     Route: 048
  5. FENISTIL [Concomitant]
     Active Substance: DIMETHINDENE
     Indication: RASH
     Route: 065
     Dates: start: 20060518, end: 20060529
  6. THALIDOMIDE PHARMION [Suspect]
     Active Substance: THALIDOMIDE
     Indication: AMYOTROPHIC LATERAL SCLEROSIS
     Dosage: INCREASED GRADUALLY FROM 100 MG TO 400 MG/DAY
     Route: 048
     Dates: start: 20060427, end: 20060730

REACTIONS (9)
  - Fatigue [Recovered/Resolved]
  - Ventricular failure [Fatal]
  - Rash [Recovered/Resolved]
  - Circulatory collapse [Fatal]
  - Hypotension [Fatal]
  - Loss of consciousness [Fatal]
  - Bradyarrhythmia [Fatal]
  - Bradycardia [Fatal]
  - Cardiac arrest [Fatal]

NARRATIVE: CASE EVENT DATE: 20060518
